FAERS Safety Report 7423088-2 (Version None)
Quarter: 2011Q2

REPORT INFORMATION
  Report Type: 
  Country: None (occurrence: None)
  Receive Date: 20110419
  Receipt Date: 20110408
  Transmission Date: 20111010
  Serious: Yes (Other)
  Sender: FDA-Public Use
  Company Number: FR-JNJFOC-20110404878

PATIENT
  Sex: Male
  Weight: 66 kg

DRUGS (5)
  1. NIZORAL [Suspect]
     Indication: PROSTATE CANCER
     Route: 048
  2. HYDROCORTISONE [Concomitant]
     Route: 048
  3. MOPRAL [Concomitant]
     Route: 048
  4. NIZORAL [Suspect]
     Route: 048
  5. ZOMETA [Concomitant]
     Route: 030

REACTIONS (3)
  - OFF LABEL USE [None]
  - OVERDOSE [None]
  - BLOOD ALKALINE PHOSPHATASE ABNORMAL [None]
